FAERS Safety Report 6254295-2 (Version None)
Quarter: 2009Q3

REPORT INFORMATION
  Report Type: 
  Country: None (occurrence: None)
  Receive Date: 20090701
  Receipt Date: 20090701
  Transmission Date: 20100115
  Serious: Yes (Other)
  Sender: FDA-Public Use
  Company Number: None

PATIENT
  Age: 42 Year
  Sex: Male
  Weight: 83.9154 kg

DRUGS (3)
  1. SIMCOR [Suspect]
     Indication: BLOOD TRIGLYCERIDES INCREASED
     Dosage: 1 TABLET DAILY PO
     Route: 048
     Dates: start: 20090512, end: 20090612
  2. SIMCOR [Suspect]
     Indication: HIGH DENSITY LIPOPROTEIN DECREASED
     Dosage: 1 TABLET DAILY PO
     Route: 048
     Dates: start: 20090512, end: 20090612
  3. SIMCOR [Suspect]
     Indication: LOW DENSITY LIPOPROTEIN
     Dosage: 1 TABLET DAILY PO
     Route: 048
     Dates: start: 20090512, end: 20090612

REACTIONS (1)
  - UPPER RESPIRATORY TRACT INFECTION [None]
